FAERS Safety Report 6834329-4 (Version None)
Quarter: 2010Q3

REPORT INFORMATION
  Report Type: 
  Country: None (occurrence: None)
  Receive Date: 20100712
  Receipt Date: 20070410
  Transmission Date: 20110219
  Serious: No
  Sender: FDA-Public Use
  Company Number: US-PFIZER INC-2007029989

PATIENT
  Sex: Male
  Weight: 65.77 kg

DRUGS (2)
  1. CHANTIX [Suspect]
     Indication: SMOKING CESSATION THERAPY
     Dosage: 1/2MG TABLETS FOR A WEEK
     Dates: start: 20070301, end: 20070326
  2. XANAX [Concomitant]

REACTIONS (2)
  - NAUSEA [None]
  - WEIGHT DECREASED [None]
